FAERS Safety Report 10472992 (Version 4)
Quarter: 2014Q4

REPORT INFORMATION
  Report Type: Report from Study
  Country: US (occurrence: US)
  Receive Date: 20140924
  Receipt Date: 20141231
  Transmission Date: 20150528
  Serious: Yes (Hospitalization, Other)
  Sender: FDA-Public Use
  Company Number: US-JNJFOC-20140915495

PATIENT
  Age: 18 Year
  Sex: Female
  Weight: 59.7 kg

DRUGS (10)
  1. FERROUS SULFATE [Concomitant]
     Active Substance: FERROUS SULFATE\FERROUS SULFATE, DRIED
     Route: 065
  2. METHYL SALICYLATE [Concomitant]
     Active Substance: METHYL SALICYLATE
     Route: 065
  3. BENADRYL [Concomitant]
     Active Substance: DIPHENHYDRAMINE HYDROCHLORIDE
     Route: 065
  4. REMICADE [Suspect]
     Active Substance: INFLIXIMAB
     Indication: INFLAMMATORY BOWEL DISEASE
     Route: 042
     Dates: start: 20110518
  5. MENTHOL. [Concomitant]
     Active Substance: MENTHOL
     Route: 061
  6. ZYRTEC [Concomitant]
     Active Substance: CETIRIZINE HYDROCHLORIDE
     Route: 065
  7. HYDROCORTISONE. [Concomitant]
     Active Substance: HYDROCORTISONE
     Route: 065
  8. KENALOG [Concomitant]
     Active Substance: TRIAMCINOLONE ACETONIDE
     Route: 061
  9. FAMOTIDINE. [Concomitant]
     Active Substance: FAMOTIDINE
     Route: 065
  10. MULTIVITAMINS WITH MINERALS [Concomitant]
     Active Substance: MINERALS\VITAMINS
     Route: 065

REACTIONS (2)
  - Cyclic neutropenia [Recovered/Resolved with Sequelae]
  - Coeliac disease [Recovered/Resolved with Sequelae]

NARRATIVE: CASE EVENT DATE: 201308
